FAERS Safety Report 17443823 (Version 1)
Quarter: 2020Q1

REPORT INFORMATION
  Report Type: Spontaneous
  Country: US (occurrence: US)
  Receive Date: 20200220
  Receipt Date: 20200220
  Transmission Date: 20200409
  Serious: Yes (Death)
  Sender: FDA-Public Use
  Company Number: None

PATIENT
  Age: 77 Year
  Sex: Male
  Weight: 140 kg

DRUGS (2)
  1. ANDEXXA [Suspect]
     Active Substance: ANDEXANET ALFA
     Indication: GASTROINTESTINAL HAEMORRHAGE
     Dosage: ?          OTHER FREQUENCY:ONCE;?
     Route: 042
     Dates: start: 20200129, end: 20200129
  2. ANDEXANET ALFA [Concomitant]
     Active Substance: ANDEXANET ALFA
     Dates: start: 20200129, end: 20200129

REACTIONS (7)
  - Vomiting [None]
  - Pulse absent [None]
  - Ventricular fibrillation [None]
  - Hypotension [None]
  - Haematemesis [None]
  - Asthenia [None]
  - Cerebrovascular accident [None]

NARRATIVE: CASE EVENT DATE: 20200129
